FAERS Safety Report 12603027 (Version 2)
Quarter: 2016Q3

REPORT INFORMATION
  Report Type: Report from Study
  Country: BR (occurrence: BR)
  Receive Date: 20160728
  Receipt Date: 20160811
  Transmission Date: 20161109
  Serious: Yes (Other)
  Sender: FDA-Public Use
  Company Number: PHHY2016BR102641

PATIENT
  Age: 35 Year
  Sex: Female
  Weight: 56 kg

DRUGS (3)
  1. GILENYA [Suspect]
     Active Substance: FINGOLIMOD HYDROCHLORIDE
     Indication: MULTIPLE SCLEROSIS
     Dosage: 0.5 MG, QD
     Route: 048
     Dates: start: 201412
  2. GILENYA [Suspect]
     Active Substance: FINGOLIMOD HYDROCHLORIDE
     Dosage: 0.5 MG, QD
     Route: 048
  3. RIVOTRIL [Concomitant]
     Active Substance: CLONAZEPAM
     Indication: NERVOUSNESS
     Dosage: 2.5 MG, 3 DROPS AT NIGHT
     Route: 065

REACTIONS (6)
  - Lymphocyte count decreased [Recovering/Resolving]
  - Depression [Recovering/Resolving]
  - Urinary tract infection [Recovering/Resolving]
  - Pulmonary mass [Recovering/Resolving]
  - Fatigue [Recovering/Resolving]
  - Orthostatic hypotension [Not Recovered/Not Resolved]
